FAERS Safety Report 8202567-4 (Version None)
Quarter: 2012Q1

REPORT INFORMATION
  Report Type: 
  Country: None (occurrence: None)
  Receive Date: 20120312
  Receipt Date: 20120305
  Transmission Date: 20120608
  Serious: Yes (Death, Life-Threatening)
  Sender: FDA-Public Use
  Company Number: GXKR2012DE001037

PATIENT

DRUGS (12)
  1. IBUPROFEN [Concomitant]
     Dosage: 1200 MG, UNK
     Route: 048
     Dates: end: 20111121
  2. MIRTAZAPINE [Suspect]
     Dosage: 30 MG, UNK
     Route: 048
     Dates: start: 20111118, end: 20111121
  3. DOMINAL ^ASTA^ [Suspect]
     Dosage: 40 MG, UNK
     Route: 048
     Dates: start: 20111120, end: 20111120
  4. PANTOPRAZOLE [Concomitant]
     Dosage: 20 MG, UNK
     Route: 048
     Dates: start: 20111118, end: 20111121
  5. MIRTAZAPINE [Suspect]
     Dosage: 45 MG, UNK
     Route: 048
     Dates: end: 20111117
  6. RISPERDAL [Suspect]
     Dosage: 1.5 MG, UNK
     Route: 048
     Dates: end: 20111117
  7. RISPERDAL [Suspect]
     Dosage: 2 MG, UNK
     Route: 048
     Dates: start: 20111118, end: 20111121
  8. JONOSTERIL                         /00351401/ [Concomitant]
     Dosage: 1000 ML, UNK
     Route: 042
     Dates: start: 20111121, end: 20111121
  9. AMLODIPINE [Suspect]
     Dosage: 5 MG, UNK
     Route: 048
     Dates: end: 20111121
  10. MELPERONE [Suspect]
     Dosage: 50-100 MG, DAILY
     Route: 048
     Dates: end: 20111117
  11. TILIDINE [Suspect]
     Dosage: 208 MG, UNK
     Route: 048
     Dates: end: 20111121
  12. METFORMIN HCL [Concomitant]
     Dosage: 1000 MG, UNK
     Route: 048
     Dates: end: 20111121

REACTIONS (2)
  - PNEUMONIA [None]
  - HALLUCINATION, VISUAL [None]
